FAERS Safety Report 16913525 (Version 1)
Quarter: 2019Q4

REPORT INFORMATION
  Report Type: Spontaneous
  Country: US (occurrence: US)
  Receive Date: 20191011
  Receipt Date: 20191011
  Transmission Date: 20200122
  Serious: No
  Sender: FDA-Public Use
  Company Number: None

PATIENT
  Sex: Female
  Weight: 85.95 kg

DRUGS (13)
  1. HYDROCORTISONE (TOPICAL) 2.5% CREAM [Concomitant]
  2. RIZATRIPTAN 10MG TABLET [Concomitant]
  3. ONDANSETRON 4 MG TABLET [Concomitant]
  4. BUPROPION 300MG TABLET (24HR) [Concomitant]
  5. CPAP THERAPY [Concomitant]
  6. KETOROLAC 30 MG/ML INTRAMUSCULAR INJECTION [Concomitant]
  7. EMGALITY [Suspect]
     Active Substance: GALCANEZUMAB-GNLM
     Indication: MIGRAINE
     Dosage: ?          OTHER FREQUENCY:ONCE A MONTH;?
     Route: 058
  8. COLLAGEN PO [Concomitant]
  9. NATURE^S CALM MAGNESIUM POWDER [Concomitant]
  10. GALCANEZUMAB-GNLM 120 G/ML SUBCUTANEOUS INJECTION (PEN) [Concomitant]
  11. ESCITALOPRAM 20MG TABLET [Concomitant]
     Active Substance: ESCITALOPRAM OXALATE
  12. OMEPRAZOLE 10 MG CAPSULE [Concomitant]
  13. VITAMIN C 1000MG W MULTIVITAMIN (EMERGEN-C) PACK PACKET [Concomitant]

REACTIONS (14)
  - Myalgia [None]
  - Increased appetite [None]
  - Visual impairment [None]
  - Alopecia [None]
  - Weight increased [None]
  - Insomnia [None]
  - Anxiety [None]
  - Therapeutic product effect incomplete [None]
  - Blindness transient [None]
  - Aura [None]
  - Disorientation [None]
  - Restless legs syndrome [None]
  - Irritability [None]
  - Pain in extremity [None]
